FAERS Safety Report 9518077 (Version 1)
Quarter: 2013Q3

REPORT INFORMATION
  Report Type: Spontaneous
  Country: US (occurrence: None)
  Receive Date: 20130910
  Receipt Date: 20130910
  Transmission Date: 20140515
  Serious: No
  Sender: FDA-Public Use
  Company Number: None

PATIENT
  Age: 60 Year
  Sex: Female
  Weight: 61.24 kg

DRUGS (3)
  1. ANASTROZOLE [Suspect]
     Indication: AROMATASE INHIBITION THERAPY
     Route: 048
     Dates: start: 20130701, end: 20130905
  2. PRAVASTATIN [Concomitant]
  3. ZYRTEC [Concomitant]

REACTIONS (8)
  - Depression [None]
  - Weight increased [None]
  - Neck pain [None]
  - Arthralgia [None]
  - Arthralgia [None]
  - Pain [None]
  - Throat tightness [None]
  - Cough [None]
